FAERS Safety Report 18814249 (Version 5)
Quarter: 2021Q1

REPORT INFORMATION
  Report Type: Report from Study
  Country: None (occurrence: US)
  Receive Date: 20210201
  Receipt Date: 20210316
  Transmission Date: 20210419
  Serious: Yes (Other)
  Sender: FDA-Public Use
  Company Number: US-ABBVIE-20K-163-3667439-00

PATIENT
  Sex: Female
  Weight: 70.37 kg

DRUGS (2)
  1. HUMIRA [Suspect]
     Active Substance: ADALIMUMAB
     Indication: RHEUMATOID ARTHRITIS
     Route: 058
     Dates: start: 20201202
  2. HUMIRA [Suspect]
     Active Substance: ADALIMUMAB
     Indication: RHEUMATOID ARTHRITIS
     Route: 058
     Dates: start: 2013, end: 2015

REACTIONS (16)
  - Pain in extremity [Not Recovered/Not Resolved]
  - Discomfort [Unknown]
  - Joint stiffness [Not Recovered/Not Resolved]
  - Injection site erythema [Recovered/Resolved]
  - Gait disturbance [Unknown]
  - Musculoskeletal stiffness [Not Recovered/Not Resolved]
  - Inflammatory marker increased [Unknown]
  - Injection site pain [Recovered/Resolved]
  - Loss of personal independence in daily activities [Recovered/Resolved]
  - Cough [Recovering/Resolving]
  - Injection site inflammation [Recovered/Resolved]
  - Stress [Unknown]
  - Accident [Unknown]
  - Rotator cuff repair [Unknown]
  - Joint swelling [Recovering/Resolving]
  - Arthralgia [Recovering/Resolving]

NARRATIVE: CASE EVENT DATE: 2015
